FAERS Safety Report 13081111 (Version 3)
Quarter: 2017Q1

REPORT INFORMATION
  Report Type: Spontaneous
  Country: FR (occurrence: FR)
  Receive Date: 20170103
  Receipt Date: 20170112
  Transmission Date: 20170428
  Serious: Yes (Hospitalization)
  Sender: FDA-Public Use
  Company Number: FR-009507513-1701FRA001070

PATIENT
  Age: 81 Year
  Sex: Male

DRUGS (7)
  1. SINEMET [Suspect]
     Active Substance: CARBIDOPA\LEVODOPA
     Indication: PARKINSON^S DISEASE
     Dosage: 2.5 DF, QD (1 IN 1 DAY)
     Route: 048
  2. XARELTO [Concomitant]
     Active Substance: RIVAROXABAN
     Indication: PULMONARY EMBOLISM
     Dosage: 20 MG ONCE A DAY
     Route: 048
  3. LASILIX [Concomitant]
     Active Substance: FUROSEMIDE
     Dosage: 40 MG MORNING
     Route: 048
  4. LEPONEX [Concomitant]
     Active Substance: CLOZAPINE
     Indication: HALLUCINATION
     Dosage: 1/4 OF TABLET , EVERY EVENING
     Route: 048
  5. DIFFU-K [Concomitant]
     Active Substance: POTASSIUM CHLORIDE
     Dosage: 1 CAPSULE MORNING AND 1 CAPSULE EVENING
     Route: 048
  6. APOMORPHINE HYDROCHLORIDE [Concomitant]
     Active Substance: APOMORPHINE HYDROCHLORIDE
     Indication: PARKINSONISM
     Dosage: 4 MG/HOUR IN PUMP, FROM 06:00 TO 20:00
     Route: 058
     Dates: start: 201501
  7. MANTADIX [Concomitant]
     Active Substance: AMANTADINE HYDROCHLORIDE
     Dosage: 1 TABLET MORNING AND MIDDAY
     Route: 048

REACTIONS (2)
  - Disease progression [Recovered/Resolved]
  - Dyskinesia [Recovered/Resolved]

NARRATIVE: CASE EVENT DATE: 20160904
